FAERS Safety Report 5858441-1 (Version None)
Quarter: 2008Q3

REPORT INFORMATION
  Report Type: 
  Country: None (occurrence: None)
  Receive Date: 20080826
  Receipt Date: 20080815
  Transmission Date: 20090109
  Serious: Yes (Death, Hospitalization, Congenital Anomaly, Other)
  Sender: FDA-Public Use
  Company Number: DE-ABBOTT-08P-062-0468741-00

PATIENT
  Weight: 1 kg

DRUGS (5)
  1. NORVIR [Suspect]
     Indication: DRUG EXPOSURE DURING PREGNANCY
     Route: 064
  2. EFAVIRENZ [Suspect]
     Indication: DRUG EXPOSURE DURING PREGNANCY
     Route: 064
  3. SAQUINAVIR [Suspect]
     Indication: DRUG EXPOSURE DURING PREGNANCY
     Route: 064
     Dates: end: 20070201
  4. LAMIVUDINE + ZIDOVUDINE [Suspect]
     Indication: DRUG EXPOSURE DURING PREGNANCY
     Route: 064
  5. VALGANCICLOVIR HCL [Suspect]
     Indication: DRUG EXPOSURE DURING PREGNANCY
     Route: 064

REACTIONS (21)
  - ANAL ATRESIA [None]
  - ANAL STENOSIS [None]
  - BACTERIAL SEPSIS [None]
  - CONGENITAL ANDROGEN DEFICIENCY [None]
  - CONGENITAL ANOMALY [None]
  - CONGENITAL CENTRAL NERVOUS SYSTEM ANOMALY [None]
  - CONGENITAL FOOT MALFORMATION [None]
  - CONGENITAL GENITAL MALFORMATION [None]
  - CONGENITAL MUSCULOSKELETAL ANOMALY [None]
  - DEXTROCARDIA [None]
  - DRUG EXPOSURE DURING PREGNANCY [None]
  - DYSMORPHISM [None]
  - LIMB MALFORMATION [None]
  - MULTIPLE CONGENITAL ABNORMALITIES [None]
  - ORGAN FAILURE [None]
  - PREMATURE BABY [None]
  - RENAL APLASIA [None]
  - RESPIRATORY FAILURE [None]
  - SKULL MALFORMATION [None]
  - SPINE MALFORMATION [None]
  - SYSTEMIC INFLAMMATORY RESPONSE SYNDROME [None]
